FAERS Safety Report 20637372 (Version 1)
Quarter: 2022Q1

REPORT INFORMATION
  Report Type: Spontaneous
  Country: US (occurrence: US)
  Receive Date: 20220325
  Receipt Date: 20220325
  Transmission Date: 20220423
  Serious: Yes (Other)
  Sender: FDA-Public Use
  Company Number: US-HLS-202200283

PATIENT
  Age: 39 Year
  Sex: Male

DRUGS (3)
  1. CLOZAPINE [Suspect]
     Active Substance: CLOZAPINE
     Indication: Product used for unknown indication
     Route: 065
  2. PHYSOSTIGMINE [Suspect]
     Active Substance: PHYSOSTIGMINE
     Indication: Product used for unknown indication
     Route: 065
  3. TRIFLUOPERAZINE [Suspect]
     Active Substance: TRIFLUOPERAZINE HYDROCHLORIDE
     Indication: Product used for unknown indication
     Route: 065

REACTIONS (3)
  - Delirium [Unknown]
  - Intentional overdose [Unknown]
  - Generalised tonic-clonic seizure [Unknown]
